FAERS Safety Report 7183800-7 (Version None)
Quarter: 2010Q4

REPORT INFORMATION
  Report Type: 
  Country: None (occurrence: None)
  Receive Date: 20101210
  Receipt Date: 20101126
  Transmission Date: 20110411
  Serious: Yes (Other)
  Sender: FDA-Public Use
  Company Number: DSJ-2010-21069

PATIENT
  Sex: Female

DRUGS (4)
  1. BENICAR HCT [Suspect]
     Indication: HYPERTENSION
     Dosage: 20/12.5 MG (1 IN 1 D), PER ORAL
     Route: 048
     Dates: start: 20080101
  2. NEBIVOLOL (NEBIVOLOL) (NEBIVOLOL) [Suspect]
     Indication: ARRHYTHMIA
     Dosage: 5 MG, PER ORAL
     Route: 048
     Dates: start: 20100801
  3. CALCIUM (CALCIUM) (CALCIUM) [Suspect]
     Indication: OSTEOPOROSIS
     Dosage: PER ORAL
     Route: 048
     Dates: start: 20100901
  4. GLUCOSAMINE/CHONDROITIN [Concomitant]

REACTIONS (8)
  - ALOPECIA [None]
  - ARRHYTHMIA [None]
  - CATARACT OPERATION [None]
  - CONDITION AGGRAVATED [None]
  - MUSCLE SPASMS [None]
  - OEDEMA PERIPHERAL [None]
  - OSTEOPOROSIS [None]
  - SKIN HYPERPIGMENTATION [None]
